FAERS Safety Report 7917822-2 (Version None)
Quarter: 2011Q4

REPORT INFORMATION
  Report Type: 
  Country: None (occurrence: None)
  Receive Date: 20111114
  Receipt Date: 20111027
  Transmission Date: 20120403
  Serious: Yes (Death, Hospitalization)
  Sender: FDA-Public Use
  Company Number: DSA_48068_2011

PATIENT
  Age: 72 Year
  Sex: Female

DRUGS (2)
  1. ENALAPRIL MALEATE [Suspect]
     Indication: ESSENTIAL HYPERTENSION
     Dosage: (DF ORAL)
     Route: 048
     Dates: start: 20110801, end: 20110801
  2. CLOPIDOGREL [Suspect]
     Indication: PRODUCT USED FOR UNKNOWN INDICATION
     Dosage: (DF ORAL)
     Route: 048
     Dates: start: 20110801, end: 20110801

REACTIONS (2)
  - CEREBROVASCULAR DISORDER [None]
  - HYPOTENSION [None]
